FAERS Safety Report 19789173 (Version 1)
Quarter: 2021Q3

REPORT INFORMATION
  Report Type: Report from Study
  Country: US (occurrence: US)
  Receive Date: 20210904
  Receipt Date: 20210904
  Transmission Date: 20211014
  Serious: No
  Sender: FDA-Public Use
  Company Number: NVSC2021US200718

PATIENT
  Age: 55 Year
  Sex: Male

DRUGS (1)
  1. ENTRESTO [Suspect]
     Active Substance: SACUBITRIL\VALSARTAN
     Indication: PRODUCT USED FOR UNKNOWN INDICATION
     Dosage: 1 DF, BID,(24/26 MG)
     Route: 065
     Dates: start: 20210804

REACTIONS (4)
  - Anxiety [Unknown]
  - White coat hypertension [Unknown]
  - Blood potassium decreased [Unknown]
  - Abdominal distension [Not Recovered/Not Resolved]
